FAERS Safety Report 13663932 (Version 1)
Quarter: 2017Q2

REPORT INFORMATION
  Report Type: Spontaneous
  Country: US (occurrence: US)
  Receive Date: 20170619
  Receipt Date: 20170619
  Transmission Date: 20170830
  Serious: No
  Sender: FDA-Public Use
  Company Number: US-LPDUSPRD-20160963

PATIENT
  Sex: Female

DRUGS (1)
  1. CYANOCOBALAMIN INJECTION, USP (0031-25) [Suspect]
     Active Substance: CYANOCOBALAMIN
     Dosage: NOT PROVIDED
     Route: 051

REACTIONS (5)
  - Sensory loss [Unknown]
  - Contusion [Unknown]
  - Fall [Unknown]
  - Skin mass [Unknown]
  - Muscular weakness [Unknown]
